FAERS Safety Report 5806249-5 (Version None)
Quarter: 2008Q3

REPORT INFORMATION
  Report Type: 
  Country: None (occurrence: None)
  Receive Date: 20080709
  Receipt Date: 20080709
  Transmission Date: 20090109
  Serious: Yes (Disabling)
  Sender: FDA-Public Use
  Company Number: None

PATIENT
  Sex: Male

DRUGS (2)
  1. MARCAINE [Suspect]
     Indication: ARTHROSCOPIC SURGERY
     Dosage: 014
     Dates: start: 20060518
  2. MARCAINE [Suspect]
     Indication: DEBRIDEMENT
     Dosage: 014
     Dates: start: 20060518

REACTIONS (3)
  - ARTHROPATHY [None]
  - EXOSTOSIS [None]
  - OSTEOARTHRITIS [None]
